FAERS Safety Report 9226134 (Version 1)
Quarter: 2013Q2

REPORT INFORMATION
  Report Type: Spontaneous
  Country: US (occurrence: US)
  Receive Date: 20130411
  Receipt Date: 20130411
  Transmission Date: 20140414
  Serious: No
  Sender: FDA-Public Use
  Company Number: US-009507513-1304USA002640

PATIENT
  Age: 52 Year
  Sex: Female

DRUGS (17)
  1. PRINIVIL [Suspect]
     Route: 048
  2. BACTRIM DS [Concomitant]
  3. DARVOCET-N [Concomitant]
  4. VICODIN [Concomitant]
  5. CODEINE [Concomitant]
  6. SULFA (SULFACETAMIDE SODIUM) [Concomitant]
  7. PREVACID [Concomitant]
     Dosage: 1 (30MG)TABLET AND PLACED ON TOP OF TONGUE WHERE IT WOULD DISSOLVE, THE SWALLOWED BY ORAL ROUTE QD
     Route: 048
     Dates: start: 20130221
  8. MELOXICAM [Concomitant]
     Dosage: 1 TABLET (15MG) BY ORAL ROUTE ONCE DAILY
     Route: 048
     Dates: start: 20130221
  9. BACLOFEN [Concomitant]
     Dosage: 1 TABLET BY ORAL ROUTE 2 TIMES PER DAY
     Route: 048
     Dates: start: 20130221
  10. ATENOLOL [Concomitant]
     Dosage: 50 MG BY ORAL ROUTE 1 TIME PER DAY
     Route: 048
     Dates: start: 20130206
  11. HYDROCHLOROTHIAZIDE [Concomitant]
     Dosage: 1 TABLET (25 MG) BY ORAL ROUTE ONCE DAILY QD
     Route: 048
     Dates: start: 20130206
  12. LORATADINE [Concomitant]
     Dosage: 1 TABLET BY ORAL ROUTE 1 TIME PER DAY PRN
     Route: 048
     Dates: start: 20130206
  13. PRAVASTATIN SODIUM [Concomitant]
     Dosage: 1TABLET (40MG) BY ORAL ROUTE ONCE DAILY AT BEDTIME
     Route: 048
     Dates: start: 20130206
  14. METFORMIN [Concomitant]
     Dosage: 1 TABLET BY ORAL ROUTE 1 TIME PER DAY
     Route: 048
     Dates: start: 20130206
  15. LYRICA [Concomitant]
     Dosage: 1 CAPSULE BY ORAL ROUTE 2 TIMES PER DAY
     Route: 048
     Dates: start: 20121024
  16. SAVELLA [Concomitant]
     Dosage: 1 TABLET BY ORAL ROUTE 2 TIMES PER DAY
     Route: 048
     Dates: start: 20120910
  17. ZOLOFT [Concomitant]
     Dosage: 1 TABLET BY ORAL ROUTE 1 TIME PER DAY
     Route: 048
     Dates: start: 20120813

REACTIONS (21)
  - Generalised anxiety disorder [Unknown]
  - Cough [Unknown]
  - Depression [Unknown]
  - Essential hypertension [Unknown]
  - Tinnitus [Unknown]
  - Back pain [Unknown]
  - Arthralgia [Unknown]
  - Fibromyalgia [Unknown]
  - Urge incontinence [Unknown]
  - Stress urinary incontinence [Unknown]
  - Arthralgia [Unknown]
  - Type 2 diabetes mellitus [Unknown]
  - Rhinitis allergic [Unknown]
  - Gastrooesophageal reflux disease [Unknown]
  - Treatment noncompliance [Unknown]
  - Tension headache [Unknown]
  - Neck pain [Unknown]
  - Dizziness [Unknown]
  - Nausea [Unknown]
  - Urticaria [Unknown]
  - Rash [Unknown]
